FAERS Safety Report 18173889 (Version 3)
Quarter: 2020Q3

REPORT INFORMATION
  Report Type: Spontaneous
  Country: US (occurrence: US)
  Receive Date: 20200819
  Receipt Date: 20200928
  Transmission Date: 20201103
  Serious: Yes (Other)
  Sender: FDA-Public Use
  Company Number: US-UCBSA-2020031788

PATIENT
  Age: 78 Year
  Sex: Female

DRUGS (44)
  1. LYRICA [Concomitant]
     Active Substance: PREGABALIN
  2. CIMZIA [Suspect]
     Active Substance: CERTOLIZUMAB PEGOL
     Indication: RHEUMATOID ARTHRITIS
     Dosage: 400 MILLIGRAM, EV 4 WEEKS
     Route: 058
     Dates: start: 201811
  3. PRILOSEC [Concomitant]
     Active Substance: OMEPRAZOLE MAGNESIUM
  4. ATARAX [Concomitant]
     Active Substance: HYDROXYZINE HYDROCHLORIDE
  5. PERCOCET [Concomitant]
     Active Substance: ACETAMINOPHEN\OXYCODONE HYDROCHLORIDE
  6. FUROSEMIDE. [Concomitant]
     Active Substance: FUROSEMIDE
  7. LORAZEPAM. [Concomitant]
     Active Substance: LORAZEPAM
  8. BISACODYL. [Concomitant]
     Active Substance: BISACODYL
  9. MIRALAX [Concomitant]
     Active Substance: POLYETHYLENE GLYCOL 3350
  10. MUCINEX [Concomitant]
     Active Substance: GUAIFENESIN
  11. DOXYCYCLINE HYCLATE [DOXYCYCLINE] [Concomitant]
  12. CIPRO [Concomitant]
     Active Substance: CIPROFLOXACIN HYDROCHLORIDE
  13. REPLENS [Concomitant]
     Active Substance: CARBOMER 934\GLYCERIN\METHYLPARABEN\PROPYLPARABEN\SODIUM HYDROXIDE
  14. THERATEARS [Concomitant]
     Active Substance: CARBOXYMETHYLCELLULOSE SODIUM
  15. CYMBALTA [Concomitant]
     Active Substance: DULOXETINE HYDROCHLORIDE
  16. IMVEXXY [Concomitant]
     Active Substance: ESTRADIOL
  17. DOCUSATE SODIUM. [Concomitant]
     Active Substance: DOCUSATE SODIUM
  18. MULTIVITAMIN [ASCORBIC ACID;BIOTIN;CALCIUM PANTOTHENATE;CYANOCOBALAMIN [Concomitant]
     Active Substance: VITAMINS
  19. UNISOM [DOXYLAMINE SUCCINATE] [Concomitant]
  20. DONA GLUCOSAMINE [Concomitant]
  21. PROLIA [Concomitant]
     Active Substance: DENOSUMAB
     Indication: PRODUCT USED FOR UNKNOWN INDICATION
  22. SINGULAIR [Concomitant]
     Active Substance: MONTELUKAST SODIUM
  23. AMLODIPINE [Concomitant]
     Active Substance: AMLODIPINE BESYLATE
  24. DIFLUCAN [Concomitant]
     Active Substance: FLUCONAZOLE
  25. ALLEGRA [Concomitant]
     Active Substance: FEXOFENADINE HYDROCHLORIDE
  26. PROBIOTIC [BIFIDOBACTERIUM BIFIDUM;BIFIDOBACTERIUM LACTIS;BIFIDOBACTER [Concomitant]
  27. FEOSOL BIFERA [Concomitant]
  28. MINERAL OIL. [Concomitant]
     Active Substance: MINERAL OIL
  29. BENICAR [Concomitant]
     Active Substance: OLMESARTAN MEDOXOMIL
  30. COENZYME Q10 [Concomitant]
     Active Substance: DIETARY SUPPLEMENT\UBIDECARENONE
  31. FISH OIL [Concomitant]
     Active Substance: FISH OIL
  32. CITRUCEL [Concomitant]
     Active Substance: METHYLCELLULOSE (4000 MPA.S)
  33. MAGNESIUM [Concomitant]
     Active Substance: MAGNESIUM
  34. ELIQUIS [Concomitant]
     Active Substance: APIXABAN
  35. METHADONE [Concomitant]
     Active Substance: METHADONE HYDROCHLORIDE
  36. XANAX [Concomitant]
     Active Substance: ALPRAZOLAM
  37. PATANOL [Concomitant]
     Active Substance: OLOPATADINE HYDROCHLORIDE
  38. LIDOCAINE. [Concomitant]
     Active Substance: LIDOCAINE
  39. CALCIUM [Concomitant]
     Active Substance: CALCIUM
  40. SUCRALFATE. [Concomitant]
     Active Substance: SUCRALFATE
  41. ZOCOR [Concomitant]
     Active Substance: SIMVASTATIN
  42. IPRATROPIUM [Concomitant]
     Active Substance: IPRATROPIUM
  43. VITAMIN D [COLECALCIFEROL] [Concomitant]
     Active Substance: CHOLECALCIFEROL
  44. GLUCOSAMINE [Concomitant]
     Active Substance: GLUCOSAMINE

REACTIONS (1)
  - Cellulitis [Recovered/Resolved]

NARRATIVE: CASE EVENT DATE: 20200719
